FAERS Safety Report 18319564 (Version 4)
Quarter: 2021Q4

REPORT INFORMATION
  Report Type: Other
  Country: CA (occurrence: CA)
  Receive Date: 20200929
  Receipt Date: 20211014
  Transmission Date: 20220303
  Serious: Yes (Hospitalization, Other)
  Sender: FDA-Public Use
  Company Number: CA-CELLTRION INC.-2020CA026232

PATIENT

DRUGS (11)
  1. RITUXIMAB [Suspect]
     Active Substance: RITUXIMAB
     Indication: Chronic inflammatory demyelinating polyradiculoneuropathy
     Dosage: 600 MILLIGRAM, 1 EVERY 1 WEEK
     Route: 042
  2. RITUXIMAB [Suspect]
     Active Substance: RITUXIMAB
     Dosage: 562 MILLIGRAM, 1 EVERY 1 WEEK
     Route: 042
  3. RITUXIMAB [Suspect]
     Active Substance: RITUXIMAB
     Dosage: 420 MILLIGRAM, 1 EVERY 1 WEEK
     Route: 042
  4. RITUXIMAB [Suspect]
     Active Substance: RITUXIMAB
     Dosage: 600 MILLIGRAM, 1 EVERY 1 WEEK
     Route: 042
  5. RITUXIMAB [Suspect]
     Active Substance: RITUXIMAB
     Dosage: 562 MILLIGRAM, 1 EVERY 1 WEEK
     Route: 042
  6. BENADRYL [Concomitant]
     Active Substance: DIPHENHYDRAMINE HYDROCHLORIDE
     Dosage: 50 MG
     Route: 042
  7. CYCLOPHOSPHAMIDE [Concomitant]
     Active Substance: CYCLOPHOSPHAMIDE
  8. METHYLPREDNISOLONE SODIUM SUCCINATE [Concomitant]
     Active Substance: METHYLPREDNISOLONE SODIUM SUCCINATE
     Indication: Premedication
     Dosage: 100 MILLIGRAM
     Route: 042
  9. MOXIFLOXACIN [Concomitant]
     Active Substance: MOXIFLOXACIN
     Dosage: 650 MILLIGRAM
  10. TYLENOL [Concomitant]
     Active Substance: ACETAMINOPHEN
     Indication: Premedication
     Dosage: 650 MG
     Route: 048
  11. ZOFRAN [Concomitant]
     Active Substance: ONDANSETRON HYDROCHLORIDE

REACTIONS (17)
  - Blood pressure systolic decreased [Recovered/Resolved]
  - Oxygen saturation decreased [Recovered/Resolved]
  - Respiratory rate increased [Recovered/Resolved]
  - Asthenia [Recovered/Resolved]
  - Blood pressure increased [Recovered/Resolved]
  - Chest pain [Recovered/Resolved]
  - Chills [Recovered/Resolved]
  - Dyspnoea [Recovered/Resolved]
  - Heart rate increased [Recovered/Resolved]
  - Infusion related reaction [Recovered/Resolved]
  - Lower respiratory tract infection [Recovered/Resolved]
  - Pain [Recovered/Resolved]
  - Pain in extremity [Recovered/Resolved]
  - Pneumonia [Recovered/Resolved]
  - Pyrexia [Recovered/Resolved]
  - Off label use [Recovered/Resolved]
  - Off label use [Unknown]
